FAERS Safety Report 12121787 (Version 3)
Quarter: 2016Q1

REPORT INFORMATION
  Report Type: Spontaneous
  Country: IN (occurrence: IN)
  Receive Date: 20160226
  Receipt Date: 20160315
  Transmission Date: 20160526
  Serious: Yes (Other)
  Sender: FDA-Public Use
  Company Number: PHHY2016IN023555

PATIENT
  Sex: Male

DRUGS (3)
  1. ARIPIPRAZOLE. [Concomitant]
     Active Substance: ARIPIPRAZOLE
     Indication: SCHIZOPHRENIA
     Dosage: 30 MG, QD (UP TO)
     Route: 065
  2. ARIPIPRAZOLE. [Concomitant]
     Active Substance: ARIPIPRAZOLE
     Indication: HALLUCINATION, AUDITORY
  3. CLOZAPINE. [Suspect]
     Active Substance: CLOZAPINE
     Indication: SCHIZOPHRENIA
     Dosage: 100 MG, QD
     Route: 065
     Dates: end: 20150506

REACTIONS (3)
  - Eosinophilia [Recovered/Resolved]
  - Oculogyric crisis [Recovered/Resolved]
  - Drug withdrawal syndrome [Unknown]

NARRATIVE: CASE EVENT DATE: 20150506
